FAERS Safety Report 16808429 (Version 1)
Quarter: 2019Q3

REPORT INFORMATION
  Report Type: Spontaneous
  Country: US (occurrence: US)
  Receive Date: 20190916
  Receipt Date: 20190916
  Transmission Date: 20191005
  Serious: No
  Sender: FDA-Public Use
  Company Number: US-009507513-1909USA004050

PATIENT
  Age: 36 Year
  Sex: Female

DRUGS (1)
  1. GANIRELIX ACETATE INJECTION [Suspect]
     Active Substance: GANIRELIX ACETATE
     Dosage: 250 MICROGRAM/0.5MILLILITER

REACTIONS (3)
  - Circumstance or information capable of leading to medication error [Unknown]
  - Product quality issue [Unknown]
  - No adverse event [Unknown]

NARRATIVE: CASE EVENT DATE: 20190909
